FAERS Safety Report 8900583 (Version 1)
Quarter: 2012Q4

REPORT INFORMATION
  Report Type: 
  Country: CA (occurrence: CA)
  Receive Date: 20121109
  Receipt Date: 20121109
  Transmission Date: 20130627
  Serious: Yes (Other)
  Sender: FDA-Public Use
  Company Number: PHHY2005CA007834

PATIENT

DRUGS (1)
  1. SANDOSTATIN LAR [Suspect]

REACTIONS (9)
  - Hallucination [Unknown]
  - Memory impairment [Unknown]
  - Hyperglycaemia [Unknown]
  - Anxiety [Unknown]
  - Injection site reaction [Unknown]
  - Joint swelling [Unknown]
  - Malaise [Unknown]
  - Headache [Unknown]
  - Nausea [Unknown]
